FAERS Safety Report 6198168-2 (Version None)
Quarter: 2009Q2

REPORT INFORMATION
  Report Type: 
  Country: None (occurrence: None)
  Receive Date: 20090521
  Receipt Date: 20090507
  Transmission Date: 20091009
  Serious: Yes (Hospitalization)
  Sender: FDA-Public Use
  Company Number: US-ROCHE-621573

PATIENT
  Age: 58 Year
  Sex: Female

DRUGS (4)
  1. PEGASYS [Suspect]
     Indication: HEPATITIS C
     Route: 065
     Dates: start: 20070101
  2. PEGASYS [Suspect]
     Route: 065
     Dates: start: 20081201, end: 20090311
  3. RIBAVIRIN [Suspect]
     Indication: HEPATITIS C
     Route: 065
     Dates: start: 20070101
  4. RIBAVIRIN [Suspect]
     Dosage: LOWERED DOSE
     Route: 065
     Dates: start: 20081201, end: 20090311

REACTIONS (15)
  - ABDOMINAL PAIN [None]
  - ANXIETY [None]
  - BLOOD PRESSURE INCREASED [None]
  - CHEST PAIN [None]
  - DEPRESSION [None]
  - DYSPNOEA [None]
  - FEELING ABNORMAL [None]
  - FLIGHT OF IDEAS [None]
  - FUNGAL INFECTION [None]
  - HALLUCINATION [None]
  - LUNG INFECTION [None]
  - LYMPHADENOPATHY [None]
  - RASH PRURITIC [None]
  - RED BLOOD CELL COUNT DECREASED [None]
  - SARCOIDOSIS [None]
